FAERS Safety Report 6173995-6 (Version None)
Quarter: 2009Q2

REPORT INFORMATION
  Report Type: 
  Country: None (occurrence: None)
  Receive Date: 20090430
  Receipt Date: 20090126
  Transmission Date: 20091009
  Serious: No
  Sender: FDA-Public Use
  Company Number: US-ASTRAZENECA-2005UW07445

PATIENT
  Sex: Female
  Weight: 43.5 kg

DRUGS (6)
  1. NEXIUM [Suspect]
     Indication: ULCER
     Route: 048
  2. NEXIUM [Suspect]
     Indication: GASTROOESOPHAGEAL REFLUX DISEASE
     Route: 048
  3. ATIVAN [Concomitant]
  4. CARDIZEM [Concomitant]
  5. NITROGLYCERIN [Concomitant]
  6. FLAX FIBER [Concomitant]

REACTIONS (5)
  - ABDOMINAL DISTENSION [None]
  - ABDOMINAL PAIN UPPER [None]
  - ABNORMAL FAECES [None]
  - FLANK PAIN [None]
  - INCORRECT DOSE ADMINISTERED [None]
